FAERS Safety Report 21360634 (Version 1)
Quarter: 2022Q3

REPORT INFORMATION
  Report Type: Spontaneous
  Country: US (occurrence: None)
  Receive Date: 20220921
  Receipt Date: 20220921
  Transmission Date: 20221027
  Serious: Yes (Other)
  Sender: FDA-Public Use
  Company Number: None

PATIENT
  Age: 61 Year

DRUGS (2)
  1. NEBIVOLOL [Suspect]
     Active Substance: NEBIVOLOL
     Indication: Hypertension
     Dosage: FREQUENCY : DAILY;?
     Route: 048
  2. TADALAFIL [Concomitant]
     Active Substance: TADALAFIL

REACTIONS (4)
  - Product substitution issue [None]
  - Vertigo [None]
  - Tachycardia [None]
  - Blood pressure increased [None]

NARRATIVE: CASE EVENT DATE: 20220701
